FAERS Safety Report 9697601 (Version 2)
Quarter: 2013Q4

REPORT INFORMATION
  Report Type: Spontaneous
  Country: JP (occurrence: JP)
  Receive Date: 20131120
  Receipt Date: 20131203
  Transmission Date: 20140711
  Serious: Yes (Death, Hospitalization, Other)
  Sender: FDA-Public Use
  Company Number: JP-EISAI INC-E7389-04423-SPO-JP

PATIENT
  Age: 27 Year
  Sex: Female

DRUGS (3)
  1. HALAVEN [Suspect]
     Indication: BREAST CANCER STAGE IV
     Dosage: 1.4 MG/M2 X 2 IN 3 WEEKS
     Route: 041
     Dates: start: 201204, end: 2012
  2. BEVACIZUMAB [Suspect]
     Indication: BREAST CANCER STAGE IV
     Dosage: 10 MG/M2
     Route: 065
     Dates: start: 2012, end: 2012
  3. PACLITAXEL [Suspect]
     Indication: BREAST CANCER STAGE IV
     Dosage: 90 MG/M2
     Route: 065
     Dates: start: 2012, end: 2012

REACTIONS (5)
  - Respiratory failure [Fatal]
  - Pleural effusion [Unknown]
  - Tumour necrosis [Not Recovered/Not Resolved]
  - Haemorrhagic tumour necrosis [Recovered/Resolved]
  - Dyspnoea [Unknown]
